FAERS Safety Report 14368002 (Version 2)
Quarter: 2018Q1

REPORT INFORMATION
  Report Type: Report from Study
  Country: US (occurrence: US)
  Receive Date: 20180109
  Receipt Date: 20180205
  Transmission Date: 20180509
  Serious: Yes (Hospitalization)
  Sender: FDA-Public Use
  Company Number: US-ASTELLAS-2018US001091

PATIENT
  Sex: Male
  Weight: 57 kg

DRUGS (1)
  1. ENZALUTAMIDE [Suspect]
     Active Substance: ENZALUTAMIDE
     Indication: PROSTATE CANCER
     Route: 048
     Dates: start: 20150617, end: 20170309

REACTIONS (1)
  - Abscess neck [Recovering/Resolving]

NARRATIVE: CASE EVENT DATE: 20170404
